FAERS Safety Report 9870746 (Version 1)
Quarter: 2014Q1

REPORT INFORMATION
  Report Type: Spontaneous
  Country: US (occurrence: US)
  Receive Date: 20140205
  Receipt Date: 20140205
  Transmission Date: 20141002
  Serious: No
  Sender: FDA-Public Use
  Company Number: US-PFIZER INC-2014031051

PATIENT
  Age: 44 Year
  Sex: Female
  Weight: 56.69 kg

DRUGS (2)
  1. CELEBREX [Suspect]
     Indication: MUSCULOSKELETAL PAIN
     Dosage: 200 MG, 1X/DAY
     Route: 048
     Dates: start: 201401
  2. CELEBREX [Suspect]
     Dosage: 200 MG, EVERY 12 HOURS
     Route: 048
     Dates: start: 201401

REACTIONS (2)
  - Drug ineffective [Unknown]
  - Muscle spasms [Unknown]
